FAERS Safety Report 12917568 (Version 7)
Quarter: 2017Q2

REPORT INFORMATION
  Report Type: Spontaneous
  Country: US (occurrence: US)
  Receive Date: 20161107
  Receipt Date: 20170515
  Transmission Date: 20170830
  Serious: Yes (Hospitalization, Congenital Anomaly, Other)
  Sender: FDA-Public Use
  Company Number: PHEH2016US028874

PATIENT
  Sex: Female

DRUGS (1)
  1. ONDANSETRON [Suspect]
     Active Substance: ONDANSETRON
     Indication: FOETAL EXPOSURE DURING PREGNANCY
     Dosage: MOTHER^S DOSE: 8 MG
     Route: 064

REACTIONS (25)
  - Foetal exposure during pregnancy [Unknown]
  - Hypotonia [Unknown]
  - Sleep apnoea syndrome [Unknown]
  - Renal fusion anomaly [Unknown]
  - Single umbilical artery [Unknown]
  - Congenital musculoskeletal anomaly [Unknown]
  - Dehydration [Unknown]
  - Congenital vesicoureteric reflux [Unknown]
  - Micrognathia [Unknown]
  - Haemangioma [Unknown]
  - Metabolic acidosis [Unknown]
  - Upper respiratory tract infection [Unknown]
  - Congenital skin dimples [Unknown]
  - Developmental delay [Unknown]
  - Tachycardia foetal [Unknown]
  - Premature baby [Unknown]
  - Dysmorphism [Unknown]
  - Hemivertebra [Unknown]
  - Otitis media [Unknown]
  - Pneumonia aspiration [Unknown]
  - Cleft palate [Unknown]
  - Congenital scoliosis [Unknown]
  - Congenital renal disorder [Unknown]
  - Congenital eye disorder [Unknown]
  - Fever neonatal [Unknown]
